FAERS Safety Report 6804254-3 (Version None)
Quarter: 2010Q2

REPORT INFORMATION
  Report Type: 
  Country: None (occurrence: None)
  Receive Date: 20100628
  Receipt Date: 20070214
  Transmission Date: 20101027
  Serious: No
  Sender: FDA-Public Use
  Company Number: US-PFIZER INC-2007017267

PATIENT
  Sex: Male

DRUGS (1)
  1. GEODON [Suspect]
     Indication: BIPOLAR DISORDER

REACTIONS (2)
  - AGITATION [None]
  - DIARRHOEA [None]
